FAERS Safety Report 5682687-9 (Version None)
Quarter: 2008Q1

REPORT INFORMATION
  Report Type: 
  Country: None (occurrence: None)
  Receive Date: 20080327
  Receipt Date: 20080229
  Transmission Date: 20080703
  Serious: No
  Sender: FDA-Public Use
  Company Number: US-BRISTOL-MYERS SQUIBB COMPANY-14097711

PATIENT
  Age: 41 Year
  Sex: Female
  Weight: 86 kg

DRUGS (5)
  1. ORENCIA [Suspect]
     Indication: RHEUMATOID ARTHRITIS
     Route: 051
     Dates: start: 20071101
  2. MORPHINE [Concomitant]
  3. METOPROLOL TARTRATE [Concomitant]
  4. LEXAPRO [Concomitant]
  5. ZYPREXA [Concomitant]

REACTIONS (4)
  - DEPRESSION [None]
  - DRUG INEFFECTIVE [None]
  - RENAL PAIN [None]
  - RHINORRHOEA [None]
